FAERS Safety Report 12199613 (Version 3)
Quarter: 2016Q2

REPORT INFORMATION
  Report Type: Spontaneous
  Country: FR (occurrence: FR)
  Receive Date: 20160322
  Receipt Date: 20160421
  Transmission Date: 20160815
  Serious: Yes (Death, Hospitalization)
  Sender: FDA-Public Use
  Company Number: FR-PFIZER INC-2016151983

PATIENT
  Age: 76 Year
  Sex: Male

DRUGS (5)
  1. DOXORUBICIN HCL [Suspect]
     Active Substance: DOXORUBICIN HYDROCHLORIDE
     Indication: SPINDLE CELL SARCOMA
     Dosage: 100 MG, CYCLIC
     Route: 042
     Dates: start: 20160112, end: 20160112
  2. ZOPHREN [Concomitant]
     Active Substance: ONDANSETRON
     Dosage: 8 MG, 1X/DAY
     Route: 042
     Dates: start: 20160112, end: 20160112
  3. IFOSFAMIDE EG [Interacting]
     Active Substance: IFOSFAMIDE
     Indication: SPINDLE CELL SARCOMA
     Dosage: 8 MG, CYCLIC
     Route: 042
     Dates: start: 20160112, end: 20160112
  4. UROMITEXAN [Concomitant]
     Active Substance: MESNA
     Dosage: UNK
     Route: 042
     Dates: start: 20160112, end: 20160112
  5. EMEND [Interacting]
     Active Substance: APREPITANT
     Indication: PROPHYLAXIS OF NAUSEA AND VOMITING
     Dosage: UNK
     Route: 048
     Dates: start: 20160112, end: 20160114

REACTIONS (2)
  - Drug interaction [Fatal]
  - Encephalopathy [Fatal]

NARRATIVE: CASE EVENT DATE: 20160112
